APPROVED DRUG PRODUCT: POMALIDOMIDE
Active Ingredient: POMALIDOMIDE
Strength: 2MG
Dosage Form/Route: CAPSULE;ORAL
Application: A210111 | Product #002 | TE Code: AB
Applicant: BRECKENRIDGE PHARMACEUTICAL INC
Approved: Oct 30, 2020 | RLD: No | RS: No | Type: RX